FAERS Safety Report 10492370 (Version 2)
Quarter: 2015Q3

REPORT INFORMATION
  Report Type: Spontaneous
  Country: US (occurrence: US)
  Receive Date: 20141002
  Receipt Date: 20150915
  Transmission Date: 20151125
  Serious: No
  Sender: FDA-Public Use
  Company Number: US-GLAXOSMITHKLINE-A1070035A

PATIENT
  Sex: Female

DRUGS (3)
  1. ADVAIR DISKUS [Suspect]
     Active Substance: FLUTICASONE PROPIONATE\SALMETEROL XINAFOATE
     Indication: ASTHMA
     Dosage: 250/50 INCREASED TO 500/50 MCG ON 30 OCTOBER 2008
     Route: 065
     Dates: start: 20041020
  2. VENTOLIN [Suspect]
     Active Substance: ALBUTEROL SULFATE
     Indication: ASTHMA
     Dosage: 90 MCG
     Route: 065
     Dates: start: 20041020
  3. VERAMYST [Concomitant]
     Active Substance: FLUTICASONE FUROATE

REACTIONS (2)
  - Hypertension [Unknown]
  - Blood cholesterol abnormal [Unknown]
